FAERS Safety Report 13348284 (Version 1)
Quarter: 2017Q1

REPORT INFORMATION
  Report Type: Spontaneous
  Country: US (occurrence: US)
  Receive Date: 20170319
  Receipt Date: 20170319
  Transmission Date: 20170428
  Serious: No
  Sender: FDA-Public Use
  Company Number: US-AMGEN-USASP2017037061

PATIENT
  Sex: Female

DRUGS (1)
  1. ENBREL [Suspect]
     Active Substance: ETANERCEPT
     Indication: RHEUMATOID ARTHRITIS
     Dosage: UNK
     Route: 065

REACTIONS (12)
  - Feeling abnormal [Recovered/Resolved]
  - Sinus headache [Unknown]
  - Dry eye [Unknown]
  - Tinnitus [Unknown]
  - Sinusitis [Unknown]
  - Dizziness [Unknown]
  - Blood pressure fluctuation [Unknown]
  - Disturbance in attention [Recovered/Resolved]
  - Nausea [Unknown]
  - Hypoacusis [Unknown]
  - Eye disorder [Unknown]
  - Unevaluable event [Unknown]

NARRATIVE: CASE EVENT DATE: 20170306
